FAERS Safety Report 5625971-7 (Version None)
Quarter: 2008Q1

REPORT INFORMATION
  Report Type: 
  Country: None (occurrence: None)
  Receive Date: 20080213
  Receipt Date: 20080213
  Transmission Date: 20080703
  Serious: Yes (Other)
  Sender: FDA-Public Use
  Company Number: None

PATIENT
  Age: 32 Year
  Sex: Male
  Weight: 68.0396 kg

DRUGS (3)
  1. CIALIS [Suspect]
     Indication: ERECTILE DYSFUNCTION
     Dosage: 10MG EVERY 3 DAYS  ORAL
     Route: 048
     Dates: start: 20080118
  2. CIALIS [Suspect]
     Indication: ERECTILE DYSFUNCTION
     Dosage: 10MG EVERY 3 DAYS  ORAL
     Route: 048
     Dates: start: 20080123
  3. CIALIS [Suspect]
     Indication: ERECTILE DYSFUNCTION
     Dosage: 10MG EVERY 3 DAYS  ORAL
     Route: 048
     Dates: start: 20080127

REACTIONS (2)
  - HYPOACUSIS [None]
  - TINNITUS [None]
